FAERS Safety Report 24603986 (Version 3)
Quarter: 2025Q3

REPORT INFORMATION
  Report Type: Report from Study
  Country: US (occurrence: US)
  Receive Date: 20241111
  Receipt Date: 20250810
  Transmission Date: 20251021
  Serious: Yes (Hospitalization, Other)
  Sender: ALEXION PHARMACEUTICALS
  Company Number: US-AstraZeneca-CH-00720934A

PATIENT
  Age: 75 Year
  Sex: Male
  Weight: 170 kg

DRUGS (5)
  1. FASENRA [Suspect]
     Active Substance: BENRALIZUMAB
     Route: 065
  2. TEZEPELUMAB [Suspect]
     Active Substance: TEZEPELUMAB
     Indication: Asthma
     Dosage: 210 MILLIGRAM, Q4W
  3. TEZEPELUMAB [Suspect]
     Active Substance: TEZEPELUMAB
  4. BREZTRI [Suspect]
     Active Substance: BUDESONIDE\FORMOTEROL\GLYCOPYRROLATE
     Route: 065
  5. DUPIXENT [Suspect]
     Active Substance: DUPILUMAB
     Route: 065

REACTIONS (12)
  - Pulmonary fibrosis [Unknown]
  - Immune thrombocytopenia [Unknown]
  - Productive cough [Unknown]
  - Sputum discoloured [Unknown]
  - Respiratory tract congestion [Unknown]
  - Atelectasis [Unknown]
  - Chronic obstructive pulmonary disease [Unknown]
  - COVID-19 [Unknown]
  - Abdominal discomfort [Unknown]
  - Platelet count decreased [Unknown]
  - Pulmonary function test abnormal [Unknown]
  - Inability to afford medication [Unknown]

NARRATIVE: CASE EVENT DATE: 20240321
